FAERS Safety Report 23683036 (Version 1)
Quarter: 2024Q1

REPORT INFORMATION
  Report Type: Spontaneous
  Country: US (occurrence: None)
  Receive Date: 20240327
  Receipt Date: 20240327
  Transmission Date: 20240410
  Serious: Yes (Other)
  Sender: FDA-Public Use
  Company Number: None

PATIENT
  Age: 69 Year
  Sex: Female
  Weight: 48.6 kg

DRUGS (23)
  1. MUCINEX DM [Suspect]
     Active Substance: DEXTROMETHORPHAN HYDROBROMIDE\GUAIFENESIN
     Indication: Nasopharyngitis
     Dosage: 1 TABLET EVERY 12 HOURS ORAL
     Route: 048
     Dates: start: 20240315, end: 20240317
  2. MUCINEX DM [Suspect]
     Active Substance: DEXTROMETHORPHAN HYDROBROMIDE\GUAIFENESIN
     Indication: Respiratory tract infection
  3. LUBIPROSTONE [Suspect]
     Active Substance: LUBIPROSTONE
     Indication: Constipation
     Dosage: 1 TABLET EVERY 12 HOURS ORAL
     Route: 048
     Dates: start: 20231126, end: 20240317
  4. DBS FOR LEF SIDE [Concomitant]
  5. NONFERROUS SCREWS [Concomitant]
  6. DENTAL IMPLANT [Concomitant]
  7. SYNTHROID [Concomitant]
  8. DULERA [Concomitant]
     Active Substance: FORMOTEROL FUMARATE DIHYDRATE\MOMETASONE FUROATE
  9. AZELASTINE [Concomitant]
     Active Substance: AZELASTINE\AZELASTINE HYDROCHLORIDE
  10. MOMETASONE FUROATE [Concomitant]
     Active Substance: MOMETASONE FUROATE
  11. ROSUVSTTIN [Concomitant]
  12. PANTOPRAZOLE SODIUM [Concomitant]
     Active Substance: PANTOPRAZOLE SODIUM
  13. TRAZODONE [Concomitant]
     Active Substance: TRAZODONE HYDROCHLORIDE
  14. FIRE ANT VENOM [Concomitant]
  15. WEEDES [Concomitant]
  16. XOLAIR [Concomitant]
     Active Substance: OMALIZUMAB
  17. RECLAST [Concomitant]
     Active Substance: ZOLEDRONIC ACID
  18. CALCIUM CITRATE [Concomitant]
     Active Substance: CALCIUM CITRATE
  19. VITMIN D [Concomitant]
  20. VITMIN D3 [Concomitant]
  21. MULTIVITAMIN FR SENIOR WOMEN [Concomitant]
  22. SIMETHICNE [Concomitant]
  23. LUTEIN [Concomitant]
     Active Substance: LUTEIN

REACTIONS (7)
  - Nasopharyngitis [None]
  - Flatulence [None]
  - Frequent bowel movements [None]
  - Diarrhoea [None]
  - Dehydration [None]
  - Vomiting [None]
  - Therapy cessation [None]

NARRATIVE: CASE EVENT DATE: 20240317
